FAERS Safety Report 19628320 (Version 1)
Quarter: 2021Q3

REPORT INFORMATION
  Report Type: Spontaneous
  Country: GB (occurrence: GB)
  Receive Date: 20210729
  Receipt Date: 20210729
  Transmission Date: 20211014
  Serious: Yes (Other)
  Sender: FDA-Public Use
  Company Number: GB-GLAXOSMITHKLINE-GB2021162077

PATIENT
  Age: 39 Year
  Sex: Female
  Weight: 55 kg

DRUGS (1)
  1. BECONASE AQ [Suspect]
     Active Substance: BECLOMETHASONE DIPROPIONATE MONOHYDRATE
     Indication: SEASONAL ALLERGY
     Dosage: 1 DF, QD, (1 SPRAY IN EACH NOSTRIL PER DAY)
     Route: 045
     Dates: start: 20210613, end: 20210624

REACTIONS (2)
  - Exposure during pregnancy [Unknown]
  - Adverse drug reaction [Recovered/Resolved]
